FAERS Safety Report 7677239-5 (Version None)
Quarter: 2011Q3

REPORT INFORMATION
  Report Type: 
  Country: None (occurrence: None)
  Receive Date: 20110811
  Receipt Date: 20110809
  Transmission Date: 20111222
  Serious: Yes (Life-Threatening, Hospitalization)
  Sender: FDA-Public Use
  Company Number: MX-PFIZER INC-2006082303

PATIENT
  Age: 65 Year
  Sex: Female
  Weight: 66 kg

DRUGS (3)
  1. OMEPRAZOLE [Concomitant]
     Route: 048
     Dates: start: 20060503
  2. ENSURE [Concomitant]
     Route: 048
     Dates: start: 20060503
  3. SUNITINIB MALATE [Suspect]
     Indication: METASTATIC RENAL CELL CARCINOMA
     Dosage: 50 MG, 1X/DAY
     Route: 048
     Dates: start: 20060419, end: 20060625

REACTIONS (3)
  - THROMBOCYTOPENIA [None]
  - HEPATIC FAILURE [None]
  - UPPER GASTROINTESTINAL HAEMORRHAGE [None]
